FAERS Safety Report 5145592-2 (Version None)
Quarter: 2006Q4

REPORT INFORMATION
  Report Type: 
  Country: None (occurrence: None)
  Receive Date: 20061101
  Receipt Date: 20061026
  Transmission Date: 20070319
  Serious: Yes (Hospitalization)
  Sender: FDA-Public Use
  Company Number: 2006-02285

PATIENT
  Age: 65 Year
  Sex: Male
  Weight: 87 kg

DRUGS (3)
  1. VELCADE [Suspect]
     Indication: WALDENSTROM'S MACROGLOBULINAEMIA
     Dosage: 2.7 MG, INTRAVENOUS
     Route: 042
     Dates: start: 20060626, end: 20060810
  2. RITUXIMAB (RITUXIMAB) [Suspect]
     Indication: WALDENSTROM'S MACROGLOBULINAEMIA
     Dosage: 769 MG, INTRAVENOUS
     Route: 042
     Dates: start: 20060706, end: 20060727
  3. DEXAMETHASONE TAB [Suspect]
     Indication: WALDENSTROM'S MACROGLOBULINAEMIA
     Dosage: 40 MG, INTRAVENOUS
     Route: 042
     Dates: start: 20060706, end: 20060810

REACTIONS (2)
  - DIVERTICULITIS [None]
  - PAIN [None]
